FAERS Safety Report 15700052 (Version 1)
Quarter: 2018Q4

REPORT INFORMATION
  Report Type: Report from Study
  Country: US (occurrence: US)
  Receive Date: 20181207
  Receipt Date: 20181207
  Transmission Date: 20190205
  Serious: Yes (Other)
  Sender: FDA-Public Use
  Company Number: US-009507513-1811USA012063

PATIENT
  Sex: Male

DRUGS (9)
  1. SERTRALINE HYDROCHLORIDE. [Concomitant]
     Active Substance: SERTRALINE HYDROCHLORIDE
  2. PRINIVIL [Suspect]
     Active Substance: LISINOPRIL
     Dosage: UNK
     Route: 048
  3. CENTRUM SILVER [Concomitant]
     Active Substance: MINERALS\VITAMINS
  4. PANTOPRAZOLE [Concomitant]
     Active Substance: PANTOPRAZOLE
  5. KEYTRUDA [Suspect]
     Active Substance: PEMBROLIZUMAB
     Indication: LUNG CANCER METASTATIC
     Dosage: 200 MILLIGRAM, Q3W
     Route: 042
     Dates: start: 201809
  6. KEYTRUDA [Suspect]
     Active Substance: PEMBROLIZUMAB
     Indication: METASTASES TO LIVER
  7. KEYTRUDA [Suspect]
     Active Substance: PEMBROLIZUMAB
     Indication: NON-SMALL CELL LUNG CANCER
  8. TYLENOL [Concomitant]
     Active Substance: ACETAMINOPHEN
     Dosage: UNK
  9. IRON (UNSPECIFIED) [Concomitant]
     Active Substance: IRON
     Dosage: UNK

REACTIONS (14)
  - Malignant neoplasm progression [Not Recovered/Not Resolved]
  - Vomiting [Not Recovered/Not Resolved]
  - Asthenia [Not Recovered/Not Resolved]
  - Lymphoma [Unknown]
  - Bone pain [Unknown]
  - Dysgeusia [Not Recovered/Not Resolved]
  - Decreased appetite [Unknown]
  - Dyspnoea [Not Recovered/Not Resolved]
  - Tumour pseudoprogression [Unknown]
  - Blood pressure decreased [Recovered/Resolved]
  - Fatigue [Unknown]
  - Lung disorder [Not Recovered/Not Resolved]
  - Ageusia [Unknown]
  - Myalgia [Unknown]

NARRATIVE: CASE EVENT DATE: 2018
